FAERS Safety Report 8301928-2 (Version None)
Quarter: 2012Q2

REPORT INFORMATION
  Report Type: 
  Country: None (occurrence: None)
  Receive Date: 20120420
  Receipt Date: 20120411
  Transmission Date: 20120825
  Serious: Yes (Hospitalization, Other)
  Sender: FDA-Public Use
  Company Number: US-ASTRAZENECA-2012SE20679

PATIENT
  Age: 58 Year
  Sex: Female
  Weight: 85.3 kg

DRUGS (3)
  1. SEROQUEL [Suspect]
     Indication: DEPRESSION
     Route: 048
  2. SEROQUEL [Suspect]
     Route: 048
  3. KLONOPIN [Concomitant]

REACTIONS (5)
  - INTENTIONAL DRUG MISUSE [None]
  - INTENTIONAL SELF-INJURY [None]
  - MALAISE [None]
  - MAJOR DEPRESSION [None]
  - SUICIDAL IDEATION [None]
